FAERS Safety Report 8464259-6 (Version None)
Quarter: 2012Q2

REPORT INFORMATION
  Report Type: 
  Country: None (occurrence: None)
  Receive Date: 20120625
  Receipt Date: 20120614
  Transmission Date: 20120825
  Serious: Yes (Other)
  Sender: FDA-Public Use
  Company Number: US-PFIZER INC-2012143582

PATIENT
  Sex: Female

DRUGS (6)
  1. EFFEXOR XR [Suspect]
     Dosage: UNK
     Dates: start: 20000101
  2. EFFEXOR [Suspect]
     Indication: ANXIETY
     Dosage: 150 MG, 1X/DAY
     Dates: start: 20080301, end: 20080101
  3. SINGULAIR [Concomitant]
     Indication: ASTHMA
     Dosage: 10 MG, DAILY
     Dates: start: 20080101
  4. ADVAIR DISKUS 100/50 [Concomitant]
     Indication: ASTHMA
     Dosage: 500/50 MCG, 2X/DAY
     Dates: start: 20080101
  5. PROAIR HFA [Concomitant]
     Indication: ASTHMA
     Dosage: 17 G, AS NEEDED
     Dates: start: 20080101
  6. SPIRIVA [Concomitant]
     Indication: ASTHMA
     Dosage: UNK, DAILY
     Dates: start: 20080101

REACTIONS (6)
  - HEADACHE [None]
  - FALL [None]
  - WEIGHT INCREASED [None]
  - PARAESTHESIA [None]
  - TREMOR [None]
  - UPPER LIMB FRACTURE [None]
